FAERS Safety Report 4718758-0 (Version None)
Quarter: 2005Q3

REPORT INFORMATION
  Report Type: 
  Country: None (occurrence: None)
  Receive Date: 20050719
  Receipt Date: 20050124
  Transmission Date: 20060218
  Serious: Yes (Other)
  Sender: FDA-Public Use
  Company Number: 2004236168US

PATIENT
  Age: 59 Year
  Sex: Male

DRUGS (4)
  1. CELEBREX [Suspect]
     Indication: INTERVERTEBRAL DISC DISORDER
     Dosage: 200 MG (200 MG, 1 IN 1 D), ORAL
     Route: 048
     Dates: start: 20030101
  2. GUAIFENESIN (GUAIFENESIN) [Suspect]
     Indication: COUGH
     Dosage: ORAL
     Route: 048
     Dates: start: 20040901, end: 20040927
  3. TERAZOSIN HYDROCHLORIDE [Concomitant]
  4. ASPIRIN [Concomitant]

REACTIONS (5)
  - BACK PAIN [None]
  - COUGH [None]
  - INSOMNIA [None]
  - MYOCARDIAL INFARCTION [None]
  - WEIGHT DECREASED [None]
